FAERS Safety Report 5370123-1 (Version None)
Quarter: 2007Q2

REPORT INFORMATION
  Report Type: 
  Country: None (occurrence: None)
  Receive Date: 20070626
  Receipt Date: 20070618
  Transmission Date: 20071010
  Serious: Yes (Hospitalization)
  Sender: FDA-Public Use
  Company Number: US-ELI_LILLY_AND_COMPANY-2006PV010117

PATIENT
  Age: 54 Year
  Sex: Female
  Weight: 112.93 kg

DRUGS (20)
  1. ACIPHEX [Concomitant]
     Dosage: 20 MG, DAILY (1/D)
     Route: 065
  2. MICARDIS [Concomitant]
     Indication: BLOOD PRESSURE
     Dosage: 80 MG, DAILY (1/D)
     Route: 065
  3. ZETIA [Concomitant]
     Dosage: 10 MG, EACH MORNING
     Route: 065
  4. GABAPENTIN [Concomitant]
     Dosage: 300 MG, 3/D
  5. NIASPAN [Concomitant]
     Dosage: 1000 MG, EACH EVENING
     Route: 065
  6. ASPIRIN [Concomitant]
     Dosage: 325 MG, UNKNOWN
     Route: 065
  7. PREVACID [Concomitant]
     Dosage: 30 MG, UNKNOWN
     Route: 065
  8. PHENOBARBITAL TAB [Concomitant]
     Indication: CONVULSION
     Dosage: 150 MG, UNKNOWN
     Route: 065
  9. AMLODIPINE BESYLATE [Concomitant]
     Dosage: 5 MG, DAILY (1/D)
     Route: 065
  10. ATORVASTATIN CALCIUM [Concomitant]
     Dosage: 40 MG, DAILY (1/D)
     Route: 065
  11. ULTRAM [Concomitant]
     Indication: SWELLING
     Dosage: 200 MG, DAILY (1/D)
     Route: 065
  12. HYDROCHLOROTHIAZIDE [Concomitant]
     Dosage: 25 MG, DAILY (1/D)
     Route: 065
  13. EXENATIDE [Suspect]
     Indication: DIABETES MELLITUS NON-INSULIN-DEPENDENT
     Dosage: 10 UG, 2/D
     Route: 058
     Dates: start: 20070612
  14. EXENATIDE [Suspect]
     Dosage: 10 UG, 2/D
     Route: 058
     Dates: start: 20060308, end: 20070601
  15. EXENATIDE [Suspect]
     Dosage: 10 UG, 2/D
     Route: 058
     Dates: start: 20060308
  16. EXENATIDE [Suspect]
     Dosage: 5 UG, 2/D
     Route: 058
     Dates: start: 20060206, end: 20060307
  17. ACTOS [Concomitant]
     Indication: DIABETES MELLITUS
     Dosage: 30 MG, DAILY (1/D)
     Route: 048
  18. AMARYL [Concomitant]
     Dosage: 1 MG, UNKNOWN
     Route: 065
  19. AMARYL [Concomitant]
     Dosage: 2 MG, UNKNOWN
     Route: 065
     Dates: end: 20060206
  20. GLUCOPHAGE [Concomitant]
     Indication: DIABETES MELLITUS
     Dosage: 1000 MG, 2/D
     Route: 048

REACTIONS (14)
  - BLOOD GLUCOSE DECREASED [None]
  - DECREASED APPETITE [None]
  - ERUCTATION [None]
  - HYPERHIDROSIS [None]
  - INFLUENZA [None]
  - INSOMNIA [None]
  - MONOPLEGIA [None]
  - NAUSEA [None]
  - ROTATOR CUFF SYNDROME [None]
  - THERAPEUTIC RESPONSE UNEXPECTED [None]
  - TREMOR [None]
  - VOMITING [None]
  - WEIGHT DECREASED [None]
  - WEIGHT INCREASED [None]
